FAERS Safety Report 16125443 (Version 1)
Quarter: 2019Q1

REPORT INFORMATION
  Report Type: Spontaneous
  Country: US (occurrence: US)
  Receive Date: 20190327
  Receipt Date: 20190327
  Transmission Date: 20190418
  Serious: Yes (Other)
  Sender: FDA-Public Use
  Company Number: US-PRINSTON PHARMACEUTICAL INC.-2019PRN00288

PATIENT
  Age: 66 Year
  Sex: Female

DRUGS (6)
  1. CLONAZEPAM. [Suspect]
     Active Substance: CLONAZEPAM
     Indication: TREMOR
  2. CLONAZEPAM. [Suspect]
     Active Substance: CLONAZEPAM
     Indication: NERVOUSNESS
  3. CLONAZEPAM. [Suspect]
     Active Substance: CLONAZEPAM
     Indication: RESPIRATION ABNORMAL
  4. CLONAZEPAM. [Suspect]
     Active Substance: CLONAZEPAM
     Indication: ANXIETY
  5. CLONAZEPAM. [Suspect]
     Active Substance: CLONAZEPAM
     Indication: SLEEP DISORDER
  6. PERCOCET [Suspect]
     Active Substance: ACETAMINOPHEN\OXYCODONE HYDROCHLORIDE

REACTIONS (11)
  - Drug interaction [Unknown]
  - Chronic obstructive pulmonary disease [Unknown]
  - Drug ineffective for unapproved indication [Unknown]
  - Myocardial infarction [Unknown]
  - Rotator cuff syndrome [Not Recovered/Not Resolved]
  - Fall [Unknown]
  - Product substitution issue [Unknown]
  - Bladder disorder [Unknown]
  - Anxiety [Unknown]
  - Sleep disorder [Unknown]
  - Unevaluable event [Unknown]

NARRATIVE: CASE EVENT DATE: 2017
